FAERS Safety Report 6668025-3 (Version None)
Quarter: 2010Q2

REPORT INFORMATION
  Report Type: 
  Country: None (occurrence: None)
  Receive Date: 20100405
  Receipt Date: 20100330
  Transmission Date: 20101027
  Serious: Yes (Hospitalization)
  Sender: FDA-Public Use
  Company Number: US-GILEAD-2010-0028092

PATIENT
  Sex: Female
  Weight: 74.002 kg

DRUGS (14)
  1. LETAIRIS [Suspect]
     Indication: PULMONARY ARTERIAL HYPERTENSION
     Route: 048
     Dates: start: 20080731
  2. REVATIO [Concomitant]
  3. ASPIRIN [Concomitant]
  4. LASIX [Concomitant]
  5. METOPROLOL SUCCINATE [Concomitant]
  6. NORVASC [Concomitant]
  7. PREDNISONE TAB [Concomitant]
  8. METFORMIN [Concomitant]
  9. CLONAZEPAM [Concomitant]
  10. PROTONIX [Concomitant]
  11. MIRALAX [Concomitant]
  12. FOSAMAX [Concomitant]
  13. VICODIN [Concomitant]
  14. POTASSIUM CHLORIDE [Concomitant]

REACTIONS (1)
  - LUNG NEOPLASM MALIGNANT [None]
